FAERS Safety Report 14940638 (Version 2)
Quarter: 2018Q4

REPORT INFORMATION
  Report Type: Spontaneous
  Country: US (occurrence: US)
  Receive Date: 20180525
  Receipt Date: 20181008
  Transmission Date: 20190204
  Serious: Yes (Hospitalization)
  Sender: FDA-Public Use
  Company Number: US-ASTRAZENECA-2018SE67016

PATIENT
  Age: 83 Year
  Sex: Female
  Weight: 131.5 kg

DRUGS (3)
  1. TUDORZA PRESSAIR [Suspect]
     Active Substance: ACLIDINIUM BROMIDE
     Indication: ASTHMA
     Dosage: 400 UG, ONE INHALATION, TWICE DAILY
     Route: 055
  2. LASIX [Concomitant]
     Active Substance: FUROSEMIDE
  3. TUDORZA PRESSAIR [Suspect]
     Active Substance: ACLIDINIUM BROMIDE
     Indication: BRONCHITIS
     Dosage: 400 UG, ONE INHALATION, TWICE DAILY
     Route: 055

REACTIONS (10)
  - Off label use [Not Recovered/Not Resolved]
  - Fluid retention [Not Recovered/Not Resolved]
  - Dyspnoea exertional [Not Recovered/Not Resolved]
  - Product use in unapproved indication [Not Recovered/Not Resolved]
  - Peripheral swelling [Not Recovered/Not Resolved]
  - Oxygen saturation abnormal [Not Recovered/Not Resolved]
  - Limb injury [Not Recovered/Not Resolved]
  - Chest injury [Not Recovered/Not Resolved]
  - Fall [Not Recovered/Not Resolved]
  - Device malfunction [Unknown]

NARRATIVE: CASE EVENT DATE: 2018
